FAERS Safety Report 15857448 (Version 1)
Quarter: 2019Q1

REPORT INFORMATION
  Report Type: Spontaneous
  Country: US (occurrence: US)
  Receive Date: 20190123
  Receipt Date: 20190123
  Transmission Date: 20190417
  Serious: No
  Sender: FDA-Public Use
  Company Number: US-MYLANLABS-2019M1000410

PATIENT

DRUGS (3)
  1. HYDROXYCHLOROQUINE SULFATE TABLETS, USP [Suspect]
     Active Substance: HYDROXYCHLOROQUINE SULFATE
     Indication: COELIAC DISEASE
     Dosage: 200 MILLIGRAM, BID
     Route: 048
     Dates: start: 20181118
  2. LYRICA [Concomitant]
     Active Substance: PREGABALIN
     Indication: FIBROMYALGIA
     Dosage: UNK
  3. BENICAR [Concomitant]
     Active Substance: OLMESARTAN MEDOXOMIL
     Dosage: UNK

REACTIONS (2)
  - Abdominal pain upper [Not Recovered/Not Resolved]
  - Diarrhoea [Not Recovered/Not Resolved]
